FAERS Safety Report 23808935 (Version 1)
Quarter: 2024Q2

REPORT INFORMATION
  Report Type: Spontaneous
  Country: US (occurrence: None)
  Receive Date: 20240501
  Receipt Date: 20240501
  Transmission Date: 20240716
  Serious: Yes (Hospitalization)
  Sender: FDA-Public Use
  Company Number: None

PATIENT
  Age: 65 Year
  Sex: Male
  Weight: 103.42 kg

DRUGS (1)
  1. NIFEDIPINE [Suspect]
     Active Substance: NIFEDIPINE
     Indication: Hypertension
     Dosage: 180 MG EVERY DAY PO?
     Route: 048
     Dates: start: 20200117, end: 20221212

REACTIONS (1)
  - Tongue oedema [None]

NARRATIVE: CASE EVENT DATE: 20221212
